FAERS Safety Report 10047112 (Version 1)
Quarter: 2014Q1

REPORT INFORMATION
  Report Type: Spontaneous
  Country: US (occurrence: US)
  Receive Date: 20140331
  Receipt Date: 20140331
  Transmission Date: 20141002
  Serious: Yes (Hospitalization)
  Sender: FDA-Public Use
  Company Number: US-MYLANLABS-2013S1008409

PATIENT
  Age: 41 Year
  Sex: Female

DRUGS (2)
  1. FENTANYL TRANSDERMAL SYSTEM [Suspect]
     Indication: BACK PAIN
     Dosage: QOD
     Route: 062
     Dates: end: 20130407
  2. OXYCONTIN [Concomitant]
     Indication: BREAKTHROUGH PAIN
     Route: 048

REACTIONS (3)
  - Drug effect decreased [Recovered/Resolved]
  - Back pain [Recovered/Resolved]
  - Withdrawal syndrome [Recovered/Resolved]
